FAERS Safety Report 7251825-9 (Version None)
Quarter: 2011Q1

REPORT INFORMATION
  Report Type: 
  Country: None (occurrence: None)
  Receive Date: 20110128
  Receipt Date: 20100106
  Transmission Date: 20110831
  Serious: No
  Sender: FDA-Public Use
  Company Number: US-ABBOTT-09P-163-0609395-00

PATIENT
  Sex: Male
  Weight: 84.444 kg

DRUGS (5)
  1. HUMIRA [Suspect]
     Indication: RHEUMATOID ARTHRITIS
     Route: 058
     Dates: start: 20080214, end: 20080601
  2. HUMIRA [Suspect]
     Route: 058
     Dates: start: 20080601, end: 20090801
  3. LIPITOR [Concomitant]
     Indication: PRODUCT USED FOR UNKNOWN INDICATION
     Route: 048
  4. HUMIRA [Suspect]
     Route: 058
     Dates: start: 20090801
  5. LISINOPRIL [Concomitant]
     Indication: HYPERTENSION
     Route: 048

REACTIONS (7)
  - INSOMNIA [None]
  - BRONCHITIS [None]
  - INJECTION SITE PAIN [None]
  - NIGHT SWEATS [None]
  - COUGH [None]
  - MALAISE [None]
  - INJECTION SITE SWELLING [None]
